FAERS Safety Report 15693049 (Version 5)
Quarter: 2019Q1

REPORT INFORMATION
  Report Type: Report from Study
  Country: JP (occurrence: JP)
  Receive Date: 20181206
  Receipt Date: 20190130
  Transmission Date: 20190417
  Serious: Yes (Other)
  Sender: FDA-Public Use
  Company Number: JP-AMGEN-JPNSP2018171628

PATIENT
  Age: 17 Year
  Sex: Female

DRUGS (2)
  1. BLINATUMOMAB [Suspect]
     Active Substance: BLINATUMOMAB
     Indication: ACUTE LYMPHOCYTIC LEUKAEMIA RECURRENT
     Dosage: 9 MCG, QD (24 HRS CONTINUOUS INTRAVENOUS INFUSION)
     Route: 042
     Dates: start: 20181127, end: 201811
  2. BLINATUMOMAB [Suspect]
     Active Substance: BLINATUMOMAB
     Dosage: 28 MUG, QD (24 HRS CONTINUOUS INTRAVENOUS INFUSION)
     Route: 042
     Dates: start: 20181210, end: 20181224

REACTIONS (3)
  - Central nervous system leukaemia [Unknown]
  - Panniculitis [Unknown]
  - Abdominal pain [Unknown]

NARRATIVE: CASE EVENT DATE: 20181129
